FAERS Safety Report 5067839-3 (Version None)
Quarter: 2006Q3

REPORT INFORMATION
  Report Type: 
  Country: None (occurrence: None)
  Receive Date: 20060717
  Receipt Date: 20051107
  Transmission Date: 20061208
  Serious: Yes (Death)
  Sender: FDA-Public Use
  Company Number: 2005-11-0526

PATIENT
  Age: 72 Year
  Sex: Male

DRUGS (3)
  1. INTEGRILIN [Suspect]
     Indication: ACUTE CORONARY SYNDROME
     Dosage: INTRAVENOUS
     Route: 042
     Dates: start: 20051104, end: 20051106
  2. HEPARIN [Suspect]
  3. ASPIRIN [Suspect]

REACTIONS (1)
  - HAEMORRHAGE INTRACRANIAL [None]
